FAERS Safety Report 6138249-2 (Version None)
Quarter: 2009Q1

REPORT INFORMATION
  Report Type: 
  Country: None (occurrence: None)
  Receive Date: 20090331
  Receipt Date: 20090326
  Transmission Date: 20090719
  Serious: Yes (Disabling)
  Sender: FDA-Public Use
  Company Number: B0548790A

PATIENT
  Age: 70 Year
  Sex: Female

DRUGS (1)
  1. REQUIP [Suspect]
     Indication: PARKINSON'S DISEASE
     Dosage: 12MG PER DAY
     Route: 048
     Dates: start: 20081114

REACTIONS (2)
  - GAIT DISTURBANCE [None]
  - MUSCLE RIGIDITY [None]
